FAERS Safety Report 8555125-6 (Version None)
Quarter: 2012Q3

REPORT INFORMATION
  Report Type: 
  Country: None (occurrence: None)
  Receive Date: 20120731
  Receipt Date: 20120719
  Transmission Date: 20120928
  Serious: Yes (Other)
  Sender: FDA-Public Use
  Company Number: GB-FRI-1000037360

PATIENT
  Age: 69 Year
  Sex: Male

DRUGS (7)
  1. AMLODIPINE [Concomitant]
     Indication: HYPERTENSION
     Dosage: 5 MG
     Dates: start: 20000101, end: 20070101
  2. SIMVASTATIN [Concomitant]
     Indication: HYPERTENSION
     Dosage: 20 MG
     Dates: start: 20000101
  3. BENDROFLUMETHIAZIDE [Suspect]
     Indication: PROTEINURIA
     Dates: start: 20000101, end: 20030101
  4. RAMIPRIL [Concomitant]
     Indication: HYPERTENSION
     Dosage: 5 MG
     Dates: start: 20000101
  5. NEBIVOLOL [Suspect]
     Dosage: 10 MG
     Route: 048
     Dates: start: 20070101, end: 20120101
  6. NEBIVOLOL [Suspect]
     Dosage: 5 MG
     Route: 048
     Dates: start: 20120101
  7. NEBIVOLOL [Suspect]
     Indication: HYPERTENSION
     Dosage: 5 MG
     Route: 048
     Dates: start: 20000101, end: 20070101

REACTIONS (12)
  - HYPERSENSITIVITY [None]
  - BLOOD PRESSURE INCREASED [None]
  - GAIT DISTURBANCE [None]
  - PRURITUS [None]
  - RENAL FAILURE [None]
  - ATRIAL FIBRILLATION [None]
  - DRY SKIN [None]
  - DIZZINESS POSTURAL [None]
  - WEIGHT LOSS POOR [None]
  - PSORIASIS [None]
  - HEART RATE INCREASED [None]
  - INTERMITTENT CLAUDICATION [None]
